FAERS Safety Report 7772905-5 (Version None)
Quarter: 2011Q3

REPORT INFORMATION
  Report Type: 
  Country: None (occurrence: None)
  Receive Date: 20110922
  Receipt Date: 20110912
  Transmission Date: 20111222
  Serious: Yes (Hospitalization)
  Sender: FDA-Public Use
  Company Number: PHHO2011JP15703

PATIENT
  Sex: Female
  Weight: 16 kg

DRUGS (2)
  1. INCREMIN [Concomitant]
     Dosage: 6 ML, UNK
     Route: 048
     Dates: start: 20100803
  2. ILARIS [Suspect]
     Indication: CRYOPYRIN ASSOCIATED PERIODIC SYNDROME
     Dosage: UNK
     Route: 058
     Dates: start: 20091125

REACTIONS (1)
  - ASTHMA [None]
